FAERS Safety Report 9720598 (Version 3)
Quarter: 2014Q1

REPORT INFORMATION
  Report Type: Report from Study
  Country: JP (occurrence: JP)
  Receive Date: 20131129
  Receipt Date: 20140127
  Transmission Date: 20141002
  Serious: Yes (Death)
  Sender: FDA-Public Use
  Company Number: JP-SA-2013SA122854

PATIENT
  Age: 5 Year
  Sex: Male

DRUGS (6)
  1. EVOLTRA [Suspect]
     Indication: ACUTE LYMPHOCYTIC LEUKAEMIA RECURRENT
     Dosage: DOSE IS 18MG/BODY
     Route: 042
     Dates: start: 20130717, end: 20130721
  2. EVOLTRA [Suspect]
     Indication: ACUTE LYMPHOCYTIC LEUKAEMIA RECURRENT
     Dosage: DOSE IS 18MG/BODY
     Route: 042
     Dates: start: 20130820, end: 20130824
  3. ETOPOSIDE [Suspect]
     Indication: ACUTE LYMPHOCYTIC LEUKAEMIA RECURRENT
     Dosage: DOSE IS 60MG/BODY
     Route: 042
     Dates: start: 20130717, end: 20130721
  4. ETOPOSIDE [Suspect]
     Indication: ACUTE LYMPHOCYTIC LEUKAEMIA RECURRENT
     Dosage: DOSE IS 60MG/BODY
     Route: 042
     Dates: start: 20130820, end: 20130824
  5. ENDOXAN [Suspect]
     Indication: ACUTE LYMPHOCYTIC LEUKAEMIA RECURRENT
     Dosage: DOSE: 260MG/BODY/DAY
     Route: 042
     Dates: start: 20130717, end: 20130721
  6. ENDOXAN [Suspect]
     Indication: ACUTE LYMPHOCYTIC LEUKAEMIA RECURRENT
     Route: 042
     Dates: start: 20130820, end: 20130824

REACTIONS (1)
  - Venoocclusive liver disease [Fatal]
